FAERS Safety Report 26116119 (Version 1)
Quarter: 2025Q4

REPORT INFORMATION
  Report Type: Report from Study
  Country: US (occurrence: US)
  Receive Date: 20251203
  Receipt Date: 20251203
  Transmission Date: 20260118
  Serious: Yes (Other)
  Sender: BIOVITRUM
  Company Number: US-BIOVITRUM-2025-US-016668

PATIENT
  Age: 39 Year
  Sex: Male

DRUGS (1)
  1. KINERET [Suspect]
     Active Substance: ANAKINRA
     Indication: Product used for unknown indication
     Dosage: 28 UNITS, 100 MG/.067 ML ROUTE: INJECTION/SYRINGE, ONCE DAILY

REACTIONS (15)
  - Night sweats [Unknown]
  - Yellow skin [Unknown]
  - Product dose omission issue [Unknown]
  - Myocardial infarction [Unknown]
  - Pain [Unknown]
  - Injury [Unknown]
  - Oral mucosal blistering [Unknown]
  - Urticaria [Unknown]
  - Cardiac failure [Unknown]
  - Hepatic failure [Unknown]
  - Renal failure [Unknown]
  - Crohn^s disease [Unknown]
  - Lung disorder [Unknown]
  - Occupational exposure to product [Unknown]
  - Osteonecrosis [Unknown]
